FAERS Safety Report 8161658-7 (Version None)
Quarter: 2012Q1

REPORT INFORMATION
  Report Type: 
  Country: None (occurrence: None)
  Receive Date: 20120224
  Receipt Date: 20120218
  Transmission Date: 20120608
  Serious: Yes (Disabling, Other)
  Sender: FDA-Public Use
  Company Number: US-PFIZER INC-2012045819

PATIENT
  Sex: Female

DRUGS (5)
  1. PREMPRO [Suspect]
     Dosage: 0.3MG/1.5MG DAILY
  2. LOMOTIL [Concomitant]
     Dosage: UNK
  3. ACETAMINOPHEN [Concomitant]
     Dosage: UNK
  4. BELLADONNA ALKALOIDS [Concomitant]
     Dosage: UNK
  5. PRILOSEC [Concomitant]
     Dosage: UNK

REACTIONS (4)
  - OSTEOPOROSIS [None]
  - GASTROINTESTINAL DISORDER [None]
  - ARTHRITIS [None]
  - VISUAL IMPAIRMENT [None]
